FAERS Safety Report 12334947 (Version 1)
Quarter: 2016Q2

REPORT INFORMATION
  Report Type: Spontaneous
  Country: US (occurrence: US)
  Receive Date: 20160504
  Receipt Date: 20160504
  Transmission Date: 20160815
  Serious: Yes (Hospitalization)
  Sender: FDA-Public Use
  Company Number: PHEH2016US011009

PATIENT
  Sex: Female

DRUGS (2)
  1. TYKERB [Suspect]
     Active Substance: LAPATINIB DITOSYLATE
     Indication: BONE CANCER
  2. TYKERB [Suspect]
     Active Substance: LAPATINIB DITOSYLATE
     Indication: BREAST CANCER FEMALE
     Dosage: 5 DF, QD
     Route: 048
     Dates: start: 20160325

REACTIONS (4)
  - Dehydration [Unknown]
  - Vomiting [Unknown]
  - Nausea [Unknown]
  - Diarrhoea [Unknown]
